FAERS Safety Report 6718611-7 (Version None)
Quarter: 2010Q2

REPORT INFORMATION
  Report Type: 
  Country: None (occurrence: None)
  Receive Date: 20100505
  Receipt Date: 20100422
  Transmission Date: 20101027
  Serious: Yes (Congenital Anomaly)
  Sender: FDA-Public Use
  Company Number: 167-20484-09111587

PATIENT
  Sex: Female

DRUGS (9)
  1. INNOHEP [Suspect]
     Dosage: TRANSPLACENTAL
     Route: 064
     Dates: start: 20050202, end: 20050305
  2. CYCLIZINE (CYCLIZINE) [Suspect]
     Indication: DRUG EXPOSURE DURING PREGNANCY
     Dosage: TRANSPLACENTAL
     Route: 064
     Dates: start: 20050202, end: 20050204
  3. RANITIDINE [Concomitant]
  4. TEMAZEPAM [Concomitant]
  5. CO-DYDRAMOL (PARACETAMOL, DIHYDROCODEINE BITARTRATE) [Concomitant]
  6. GAVISCON [Concomitant]
  7. PROSTIN (DINOPROSTONE) [Concomitant]
  8. CIMETIDINE [Concomitant]
  9. SODIUM CITRATE [Concomitant]

REACTIONS (5)
  - CAESAREAN SECTION [None]
  - MATERNAL DRUGS AFFECTING FOETUS [None]
  - OLIGOHYDRAMNIOS [None]
  - SMALL FOR DATES BABY [None]
  - TALIPES [None]
